FAERS Safety Report 20141672 (Version 2)
Quarter: 2022Q1

REPORT INFORMATION
  Report Type: Report from Study
  Country: GB (occurrence: GB)
  Receive Date: 20211202
  Receipt Date: 20220304
  Transmission Date: 20220423
  Serious: Yes (Life-Threatening, Hospitalization, Other)
  Sender: FDA-Public Use
  Company Number: GB-SAMSUNG BIOEPIS-SB-2020-34623

PATIENT
  Sex: Male

DRUGS (1)
  1. ETANERCEPT [Suspect]
     Active Substance: ETANERCEPT
     Indication: Rheumatoid arthritis
     Route: 058

REACTIONS (22)
  - Chronic obstructive pulmonary disease [Unknown]
  - Lower respiratory tract infection [Unknown]
  - Type 2 diabetes mellitus [Unknown]
  - Pulmonary embolism [Unknown]
  - COVID-19 [Unknown]
  - Arthralgia [Unknown]
  - Mobility decreased [Unknown]
  - Sleep apnoea syndrome [Unknown]
  - Pain in extremity [Unknown]
  - Weight increased [Unknown]
  - Peripheral swelling [Unknown]
  - Appetite disorder [Unknown]
  - Food craving [Unknown]
  - Dry mouth [Unknown]
  - Loss of personal independence in daily activities [Unknown]
  - Ill-defined disorder [Unknown]
  - Pain [Not Recovered/Not Resolved]
  - Muscle spasms [Unknown]
  - Walking aid user [Unknown]
  - Back pain [Unknown]
  - Therapeutic product effect incomplete [Unknown]
  - Therapeutic product effect decreased [Unknown]
